FAERS Safety Report 14173970 (Version 2)
Quarter: 2018Q1

REPORT INFORMATION
  Report Type: Spontaneous
  Country: HU (occurrence: HU)
  Receive Date: 20171109
  Receipt Date: 20180215
  Transmission Date: 20180508
  Serious: Yes (Other)
  Sender: FDA-Public Use
  Company Number: HU-CELGENEUS-HUN-20171009451

PATIENT
  Age: 49 Year
  Sex: Female

DRUGS (4)
  1. REVLIMID [Suspect]
     Active Substance: LENALIDOMIDE
     Indication: PLASMA CELL MYELOMA
     Route: 065
     Dates: start: 20170501
  2. ESMYA [Concomitant]
     Active Substance: ULIPRISTAL ACETATE
     Indication: UTERINE LEIOMYOMA
     Route: 065
  3. TENSIOMIN [Concomitant]
     Active Substance: CAPTOPRIL
     Indication: BLOOD PRESSURE FLUCTUATION
     Route: 065
  4. CONCOR [Concomitant]
     Active Substance: BISOPROLOL FUMARATE
     Indication: BLOOD PRESSURE FLUCTUATION
     Route: 065

REACTIONS (6)
  - Thrombocytopenia [Unknown]
  - Gastrooesophageal reflux disease [Unknown]
  - Dermatitis allergic [Unknown]
  - Constipation [Unknown]
  - Amaurosis fugax [Unknown]
  - Palpitations [Unknown]
